FAERS Safety Report 17680273 (Version 1)
Quarter: 2020Q2

REPORT INFORMATION
  Report Type: Spontaneous
  Country: US (occurrence: US)
  Receive Date: 20200417
  Receipt Date: 20200417
  Transmission Date: 20200714
  Serious: No
  Sender: FDA-Public Use
  Company Number: US-GLAXOSMITHKLINE-US2020061188

PATIENT
  Age: 73 Year
  Sex: Female

DRUGS (3)
  1. NICODERM CQ [Suspect]
     Active Substance: NICOTINE
     Indication: SMOKING CESSATION THERAPY
     Dosage: 21 MG
     Dates: start: 201907
  2. NICORETTE [Suspect]
     Active Substance: NICOTINE
     Indication: SMOKING CESSATION THERAPY
     Dosage: UNK, TOOK 1 TO 2 OF THEM
     Dates: start: 201907
  3. NICODERM CQ [Suspect]
     Active Substance: NICOTINE
     Dosage: 21 MG
     Dates: start: 20200406

REACTIONS (4)
  - Application site pruritus [Recovered/Resolved]
  - Drug ineffective [Unknown]
  - Application site rash [Recovered/Resolved]
  - Nicotine dependence [Unknown]

NARRATIVE: CASE EVENT DATE: 20200406
